FAERS Safety Report 7421362-7 (Version None)
Quarter: 2011Q2

REPORT INFORMATION
  Report Type: 
  Country: None (occurrence: None)
  Receive Date: 20110418
  Receipt Date: 20110412
  Transmission Date: 20111010
  Serious: Yes (Hospitalization, Other)
  Sender: FDA-Public Use
  Company Number: US-AMGEN-USASP2011015115

PATIENT
  Age: 45 Year
  Sex: Male
  Weight: 95.692 kg

DRUGS (1)
  1. NPLATE [Suspect]
     Indication: IDIOPATHIC THROMBOCYTOPENIC PURPURA
     Dosage: 600 A?G, QWK
     Route: 058
     Dates: start: 20100520

REACTIONS (6)
  - PLATELET COUNT DECREASED [None]
  - NEUROPATHY PERIPHERAL [None]
  - VISION BLURRED [None]
  - DIPLOPIA [None]
  - EPISTAXIS [None]
  - CEREBRAL INFARCTION [None]
